FAERS Safety Report 4439527-5 (Version None)
Quarter: 2004Q3

REPORT INFORMATION
  Report Type: 
  Country: None (occurrence: None)
  Receive Date: 20040901
  Receipt Date: 20040901
  Transmission Date: 20050211
  Serious: Yes (Hospitalization)
  Sender: FDA-Public Use
  Company Number: None

PATIENT
  Sex: Female
  Weight: 111.1313 kg

DRUGS (4)
  1. SARAFEM [Suspect]
     Indication: MENOPAUSE
     Dosage: PO
     Route: 048
  2. XANAX [Suspect]
     Indication: MENOPAUSE
     Dosage: PO
     Route: 048
  3. TYLENOL [Concomitant]
  4. SINUS [Concomitant]

REACTIONS (3)
  - ABDOMINAL PAIN UPPER [None]
  - HEADACHE [None]
  - IRRITABILITY [None]
